FAERS Safety Report 8615633-6 (Version None)
Quarter: 2012Q3

REPORT INFORMATION
  Report Type: 
  Country: None (occurrence: None)
  Receive Date: 20120823
  Receipt Date: 20120814
  Transmission Date: 20120928
  Serious: Yes (Life-Threatening)
  Sender: FDA-Public Use
  Company Number: US-009507513-1208USA007106

PATIENT

DRUGS (2)
  1. SEROQUEL [Concomitant]
  2. SAPHRIS [Suspect]

REACTIONS (1)
  - BLOOD PRESSURE DECREASED [None]
